FAERS Safety Report 6104741-X (Version None)
Quarter: 2009Q1

REPORT INFORMATION
  Report Type: 
  Country: None (occurrence: None)
  Receive Date: 20090305
  Receipt Date: 20090220
  Transmission Date: 20090719
  Serious: Yes (Other)
  Sender: FDA-Public Use
  Company Number: TR-RANBAXY-2009RR-22064

PATIENT
  Age: 26 Year
  Sex: Female

DRUGS (3)
  1. CIPROFLOXACIN [Suspect]
     Indication: BRONCHITIS
     Dosage: 500 MG, BID
  2. PREDNISOLONE [Suspect]
     Dosage: 40 MG, QD
  3. URSODIOL [Concomitant]
     Indication: CHOLESTASIS
     Dosage: 15 MG/KG, QD

REACTIONS (3)
  - CUSHING'S SYNDROME [None]
  - STEVENS-JOHNSON SYNDROME [None]
  - VANISHING BILE DUCT SYNDROME [None]
